FAERS Safety Report 7022199-3 (Version None)
Quarter: 2010Q3

REPORT INFORMATION
  Report Type: 
  Country: None (occurrence: None)
  Receive Date: 20100928
  Receipt Date: 20100913
  Transmission Date: 20110219
  Serious: Yes (Congenital Anomaly)
  Sender: FDA-Public Use
  Company Number: AUR-APL-2010-02283

PATIENT
  Age: 13 Week

DRUGS (2)
  1. CITALOPRAM HYDROBROMIDE [Suspect]
     Dosage: TRANSPLACENTAL
     Route: 064
  2. HEPATITIS B VIRUS [Suspect]
     Dosage: TRANSPLACENTAL
     Route: 064

REACTIONS (6)
  - ABDOMINAL WALL ANOMALY [None]
  - ECTOPIA CORDIS [None]
  - HYDROPS FOETALIS [None]
  - LIMB MALFORMATION [None]
  - LIMB REDUCTION DEFECT [None]
  - MATERNAL DRUGS AFFECTING FOETUS [None]
